FAERS Safety Report 11895325 (Version 2)
Quarter: 2016Q1

REPORT INFORMATION
  Report Type: Spontaneous
  Country: JP (occurrence: JP)
  Receive Date: 20160107
  Receipt Date: 20160113
  Transmission Date: 20160526
  Serious: Yes (Hospitalization, Other)
  Sender: FDA-Public Use
  Company Number: JP-PFIZER INC-2015473840

PATIENT
  Age: 6 Decade
  Sex: Female

DRUGS (2)
  1. LYRICA [Suspect]
     Active Substance: PREGABALIN
     Indication: NEURALGIA
     Dosage: 50 MG, DAILY
     Route: 048
     Dates: start: 20151126, end: 20151209
  2. CALONAL [Suspect]
     Active Substance: ACETAMINOPHEN
     Dosage: 1800 MG, DAILY
     Dates: start: 20151118, end: 20151209

REACTIONS (1)
  - Hepatic function abnormal [Recovered/Resolved]

NARRATIVE: CASE EVENT DATE: 20151209
